APPROVED DRUG PRODUCT: COMPLERA
Active Ingredient: EMTRICITABINE; RILPIVIRINE HYDROCHLORIDE; TENOFOVIR DISOPROXIL FUMARATE
Strength: 200MG;EQ 25MG BASE;300MG
Dosage Form/Route: TABLET;ORAL
Application: N202123 | Product #001 | TE Code: AB
Applicant: GILEAD SCIENCES INC
Approved: Aug 10, 2011 | RLD: Yes | RS: Yes | Type: RX

PATENTS:
Patent 10857102 | Expires: Jan 14, 2033